FAERS Safety Report 4536842-1 (Version None)
Quarter: 2004Q4

REPORT INFORMATION
  Report Type: 
  Country: None (occurrence: None)
  Receive Date: 20041223
  Receipt Date: 20041208
  Transmission Date: 20050328
  Serious: Yes (Hospitalization)
  Sender: FDA-Public Use
  Company Number: US-GLAXOSMITHKLINE-A0536635A

PATIENT
  Age: 52 Year
  Sex: Female
  Weight: 64.5 kg

DRUGS (8)
  1. LOTRONEX [Suspect]
     Indication: IRRITABLE BOWEL SYNDROME
     Dosage: .5MG PER DAY
     Route: 048
     Dates: start: 20041202, end: 20041205
  2. M.V.I. [Concomitant]
     Dosage: 1TAB PER DAY
     Route: 048
  3. ASPIRIN [Concomitant]
     Dosage: 81MG PER DAY
     Route: 048
  4. ATENOLOL [Concomitant]
     Dosage: 25MG PER DAY
     Route: 048
  5. VIVELLE [Concomitant]
     Dosage: .05MG PER DAY
  6. Q10 [Concomitant]
     Dosage: 100MG PER DAY
     Route: 048
  7. GLUCOSAMINE [Concomitant]
     Route: 048
  8. FLAXSEED OIL [Concomitant]
     Dosage: 1000MG PER DAY
     Route: 048

REACTIONS (6)
  - ABDOMINAL PAIN [None]
  - COLITIS ISCHAEMIC [None]
  - DIVERTICULUM [None]
  - HAEMATOCHEZIA [None]
  - NAUSEA [None]
  - VOMITING [None]
